FAERS Safety Report 5632117-8 (Version None)
Quarter: 2008Q1

REPORT INFORMATION
  Report Type: 
  Country: None (occurrence: None)
  Receive Date: 20080220
  Receipt Date: 20080213
  Transmission Date: 20080703
  Serious: Yes (Life-Threatening)
  Sender: FDA-Public Use
  Company Number: B0508911A

PATIENT
  Age: 39 Year
  Sex: Female

DRUGS (1)
  1. VALTREX [Suspect]
     Dosage: 100MG THREE TIMES PER DAY
     Route: 065

REACTIONS (1)
  - VAGINAL HAEMORRHAGE [None]
